FAERS Safety Report 8919312 (Version 7)
Quarter: 2013Q3

REPORT INFORMATION
  Report Type: Spontaneous
  Country: US (occurrence: US)
  Receive Date: 20121121
  Receipt Date: 20130812
  Transmission Date: 20140515
  Serious: Yes (Other)
  Sender: FDA-Public Use
  Company Number: US-PFIZER INC-2012289738

PATIENT
  Age: 71 Year
  Sex: Male
  Weight: 127 kg

DRUGS (2)
  1. LYRICA [Suspect]
     Indication: PAIN IN EXTREMITY
     Dosage: 150 MG, 4X/DAY
     Route: 048
     Dates: start: 201211
  2. LYRICA [Suspect]
     Indication: FIBROMYALGIA
     Dosage: 100 MG, 4X/DAY
     Dates: end: 201307

REACTIONS (5)
  - Arthropathy [Unknown]
  - Depression [Unknown]
  - Vision blurred [Unknown]
  - Drug ineffective [Unknown]
  - Pain [Unknown]
